FAERS Safety Report 9175094 (Version 1)
Quarter: 2013Q1

REPORT INFORMATION
  Report Type: Spontaneous
  Country: KR (occurrence: None)
  Receive Date: 20130315
  Receipt Date: 20130315
  Transmission Date: 20140127
  Serious: Yes (Hospitalization, Other)
  Sender: FDA-Public Use
  Company Number: 2013-04126

PATIENT
  Age: 54 Year
  Sex: Male

DRUGS (4)
  1. CARBAMAZEPINE (UNKNOWN) (CARBAMAZEPINE) UNK, UNKUNK [Suspect]
     Indication: NEUROPATHY PERIPHERAL
  2. CILOSTAZOL (ATLLC) (CILOSTAZOL) UNK, UNKUNK [Suspect]
     Indication: ANTIPLATELET THERAPY
  3. ASPIRIN (ACETYLSALICYLIC ACID) [Concomitant]
  4. CLOPIDOGREL (CLOPIDOGREL) [Concomitant]

REACTIONS (5)
  - Drug reaction with eosinophilia and systemic symptoms [None]
  - Dermatitis exfoliative [None]
  - Hepatitis [None]
  - Drug reaction with eosinophilia and systemic symptoms [None]
  - Drug reaction with eosinophilia and systemic symptoms [None]
